FAERS Safety Report 14975972 (Version 1)
Quarter: 2018Q2

REPORT INFORMATION
  Report Type: Spontaneous
  Country: US (occurrence: US)
  Receive Date: 20180605
  Receipt Date: 20180605
  Transmission Date: 20180711
  Serious: No
  Sender: FDA-Public Use
  Company Number: US-ROCHE-2094840

PATIENT
  Sex: Female

DRUGS (4)
  1. ENBREL [Concomitant]
     Active Substance: ETANERCEPT
  2. HUMIRA [Concomitant]
     Active Substance: ADALIMUMAB
  3. ACTEMRA [Suspect]
     Active Substance: TOCILIZUMAB
     Indication: PRODUCT USED FOR UNKNOWN INDICATION
     Dosage: PRIOR TO 2018
     Route: 065
  4. PLAQUENIL [Concomitant]
     Active Substance: HYDROXYCHLOROQUINE SULFATE

REACTIONS (1)
  - Infusion related reaction [Unknown]
